FAERS Safety Report 17354273 (Version 1)
Quarter: 2020Q1

REPORT INFORMATION
  Report Type: Spontaneous
  Country: US (occurrence: US)
  Receive Date: 20200131
  Receipt Date: 20200131
  Transmission Date: 20200409
  Serious: Yes (Other)
  Sender: FDA-Public Use
  Company Number: US-GLAXOSMITHKLINE-US2020017208

PATIENT
  Sex: Female

DRUGS (1)
  1. TUMS [Suspect]
     Active Substance: CALCIUM CARBONATE
     Indication: MINERAL SUPPLEMENTATION
     Dosage: 2 DF, QD
     Dates: start: 2000

REACTIONS (4)
  - Choking [Recovered/Resolved]
  - Incorrect product administration duration [Unknown]
  - Product use in unapproved indication [Unknown]
  - Obstructive airways disorder [Unknown]
